FAERS Safety Report 24023579 (Version 2)
Quarter: 2024Q3

REPORT INFORMATION
  Report Type: Report from Study
  Country: MX (occurrence: MX)
  Receive Date: 20240627
  Receipt Date: 20240710
  Transmission Date: 20241017
  Serious: No
  Sender: ROCHE
  Company Number: MX-ROCHE-3510981

PATIENT
  Age: 55 Year
  Sex: Female
  Weight: 57.0 kg

DRUGS (1)
  1. PHESGO [Suspect]
     Active Substance: HYALURONIDASE-ZZXF\PERTUZUMAB\TRASTUZUMAB
     Indication: Breast cancer
     Route: 058
     Dates: start: 20240208

REACTIONS (1)
  - Depressed mood [Recovered/Resolved]

NARRATIVE: CASE EVENT DATE: 20240212
